FAERS Safety Report 7035635-3 (Version None)
Quarter: 2010Q4

REPORT INFORMATION
  Report Type: 
  Country: None (occurrence: None)
  Receive Date: 20101008
  Receipt Date: 20100930
  Transmission Date: 20110411
  Serious: Yes (Other)
  Sender: FDA-Public Use
  Company Number: US-JNJFOC-20101000348

PATIENT
  Sex: Female
  Weight: 74.84 kg

DRUGS (17)
  1. ELMIRON [Suspect]
     Indication: CYSTITIS INTERSTITIAL
     Route: 048
  2. LEVAQUIN [Suspect]
     Indication: PNEUMONIA
     Route: 048
  3. OXYBUTYNIN [Suspect]
     Indication: CYSTITIS INTERSTITIAL
     Route: 048
  4. DETROL LA [Concomitant]
     Indication: CYSTITIS INTERSTITIAL
     Route: 048
  5. MULTIPLE VITAMIN [Concomitant]
     Indication: ANAEMIA
     Route: 048
  6. IBUPROFEN [Concomitant]
     Indication: ANKYLOSING SPONDYLITIS
     Route: 048
  7. SKELAXIN [Concomitant]
     Indication: MUSCLE SPASMS
     Route: 048
  8. PROAIR HFA [Concomitant]
     Indication: CHRONIC OBSTRUCTIVE PULMONARY DISEASE
     Route: 045
  9. ADVAIR DISKUS 100/50 [Concomitant]
     Indication: CHRONIC OBSTRUCTIVE PULMONARY DISEASE
     Route: 045
  10. SPIRIVA [Concomitant]
     Indication: CHRONIC OBSTRUCTIVE PULMONARY DISEASE
     Route: 065
  11. ASPIRIN [Concomitant]
     Indication: CAROTID ARTERY OCCLUSION
     Route: 048
  12. PRAVASTATIN [Concomitant]
     Indication: BLOOD CHOLESTEROL
     Route: 048
  13. PLAVIX [Concomitant]
     Indication: TRANSIENT ISCHAEMIC ATTACK
     Route: 048
  14. NORTRIPTYLINE [Concomitant]
     Indication: NERVE INJURY
     Route: 048
  15. IPRATROPIUM BROMIDE [Concomitant]
     Indication: RESPIRATORY DISORDER
     Route: 065
  16. OXYCONTIN [Concomitant]
     Indication: PAIN
     Route: 048
  17. PHENAZOPYRIDINE HCL TAB [Concomitant]
     Indication: CYSTITIS INTERSTITIAL
     Route: 048

REACTIONS (8)
  - ALOPECIA [None]
  - BONE DISORDER [None]
  - DENTAL CARIES [None]
  - EMERGENCY CARE [None]
  - LIGAMENT CALCIFICATION [None]
  - MUSCULOSKELETAL PAIN [None]
  - TENDON RUPTURE [None]
  - WEIGHT DECREASED [None]
